FAERS Safety Report 12328083 (Version 1)
Quarter: 2016Q2

REPORT INFORMATION
  Report Type: Spontaneous
  Country: US (occurrence: US)
  Receive Date: 20160503
  Receipt Date: 20160503
  Transmission Date: 20160815
  Serious: No
  Sender: FDA-Public Use
  Company Number: US-IMPAX LABORATORIES, INC-2016-IPXL-00290

PATIENT
  Age: 62 Year
  Sex: Male

DRUGS (7)
  1. AMINO ACID [Concomitant]
     Indication: MEMORY IMPAIRMENT
     Dosage: UNK
     Route: 065
  2. AMINO ACID [Concomitant]
     Indication: PARKINSON^S DISEASE
  3. VITAMIN B [Concomitant]
     Active Substance: VITAMIN B
     Indication: SUPPLEMENTATION THERAPY
     Dosage: UNK
     Route: 065
  4. CARDIOPLUS [Concomitant]
     Indication: CARDIAC DISORDER
     Dosage: UNK
     Route: 065
  5. VALERIAAN [Concomitant]
     Active Substance: VALERIAN
     Indication: SLEEP DISORDER
     Dosage: UNK
     Route: 065
  6. GINSENG [Concomitant]
     Active Substance: ASIAN GINSENG
     Indication: MEMORY IMPAIRMENT
     Dosage: UNK
     Route: 065
  7. RYTARY [Suspect]
     Active Substance: CARBIDOPA\LEVODOPA
     Indication: PARKINSON^S DISEASE
     Dosage: (23.75/95MG  8 CAPSULES)
     Route: 048
     Dates: start: 20160309

REACTIONS (1)
  - Pollakiuria [Unknown]

NARRATIVE: CASE EVENT DATE: 20160310
